FAERS Safety Report 14934031 (Version 5)
Quarter: 2019Q4

REPORT INFORMATION
  Report Type: Spontaneous
  Country: US (occurrence: US)
  Receive Date: 20180524
  Receipt Date: 20191220
  Transmission Date: 20200122
  Serious: Yes (Hospitalization)
  Sender: FDA-Public Use
  Company Number: US-JNJFOC-20180528549

PATIENT
  Age: 52 Year
  Sex: Female

DRUGS (3)
  1. XARELTO [Suspect]
     Active Substance: RIVAROXABAN
     Indication: THROMBOSIS PROPHYLAXIS
     Route: 048
     Dates: start: 201601, end: 2016
  2. ASPIRIN                            /00002701/ [Suspect]
     Active Substance: ASPIRIN
     Route: 065
  3. XARELTO [Suspect]
     Active Substance: RIVAROXABAN
     Route: 048
     Dates: start: 201605, end: 201705

REACTIONS (5)
  - Rectal haemorrhage [Unknown]
  - Gastrointestinal haemorrhage [Unknown]
  - Cerebrovascular accident [Unknown]
  - Haematuria [Unknown]
  - Pulmonary embolism [Unknown]

NARRATIVE: CASE EVENT DATE: 20160213
